FAERS Safety Report 15843664 (Version 1)
Quarter: 2019Q1

REPORT INFORMATION
  Report Type: Spontaneous
  Country: US (occurrence: US)
  Receive Date: 20190118
  Receipt Date: 20190118
  Transmission Date: 20190417
  Serious: No
  Sender: FDA-Public Use
  Company Number: US-ACHAOGEN INC-US-ACHN-18-00020

PATIENT
  Age: 77 Year
  Sex: Male

DRUGS (1)
  1. ZEMDRI [Suspect]
     Active Substance: PLAZOMICIN
     Indication: URINARY TRACT INFECTION
     Dosage: UNKNOWN
     Dates: start: 20180921, end: 20180927

REACTIONS (3)
  - Drug level increased [Unknown]
  - Vertigo [Unknown]
  - Blood creatinine increased [Unknown]

NARRATIVE: CASE EVENT DATE: 20180925
